FAERS Safety Report 8438294 (Version 4)
Quarter: 2013Q3

REPORT INFORMATION
  Report Type: Spontaneous
  Country: US (occurrence: US)
  Receive Date: 20120302
  Receipt Date: 20130809
  Transmission Date: 20140515
  Serious: Yes (Death)
  Sender: FDA-Public Use
  Company Number: US-US-EMD SERONO, INC.-232705K09USA

PATIENT
  Age: 70 Year
  Sex: Female
  Weight: 68 kg

DRUGS (12)
  1. REBIF [Suspect]
     Indication: MULTIPLE SCLEROSIS
     Route: 058
     Dates: start: 20080814
  2. REBIF [Suspect]
     Route: 058
     Dates: start: 20081008, end: 200909
  3. REBIF [Suspect]
     Route: 058
     Dates: start: 200909, end: 201306
  4. CHLORZOXAZONE [Concomitant]
     Indication: MULTIPLE SCLEROSIS
  5. SAL-TROPINE [Concomitant]
     Indication: SALIVARY HYPERSECRETION
  6. OMEPRAZOLE [Concomitant]
     Indication: GASTRIC DISORDER
  7. LORAZEPAM [Concomitant]
     Indication: MUSCLE SPASMS
  8. DETROL                             /01350201/ [Concomitant]
     Indication: BLADDER DISORDER
  9. TYLENOL EXTRA-STRENGTH [Concomitant]
     Indication: HEADACHE
  10. TYLENOL WITH CODEINE [Concomitant]
     Indication: PAIN
  11. SIMVASTATIN [Concomitant]
     Indication: BLOOD CHOLESTEROL INCREASED
  12. TYLENOL PM                         /01088101/ [Concomitant]
     Indication: SLEEP DISORDER

REACTIONS (6)
  - Non-Hodgkin^s lymphoma [Fatal]
  - Malignant melanoma [Fatal]
  - Metastases to lung [Fatal]
  - Metastases to central nervous system [Fatal]
  - Radiation skin injury [Not Recovered/Not Resolved]
  - Skin papilloma [Recovered/Resolved]
